FAERS Safety Report 25010372 (Version 2)
Quarter: 2025Q1

REPORT INFORMATION
  Report Type: Spontaneous
  Country: ES (occurrence: ES)
  Receive Date: 20250225
  Receipt Date: 20250324
  Transmission Date: 20250408
  Serious: Yes (Hospitalization, Other)
  Sender: MYLAN
  Company Number: ES-OTSUKA-2025_000531

PATIENT
  Age: 46 Year
  Sex: Female

DRUGS (13)
  1. ARIPIPRAZOLE [Suspect]
     Active Substance: ARIPIPRAZOLE
     Indication: Product used for unknown indication
  2. ABILIFY MAINTENA [Suspect]
     Active Substance: ARIPIPRAZOLE
     Indication: Paranoid personality disorder
     Dosage: 400 MG EVERY 28 DAYS
     Dates: start: 20210201
  3. VALPROATE SODIUM [Concomitant]
     Active Substance: VALPROATE SODIUM
     Indication: Product used for unknown indication
  4. CLOBAZAM [Concomitant]
     Active Substance: CLOBAZAM
     Indication: Product used for unknown indication
  5. SYMBICORT [Concomitant]
     Active Substance: BUDESONIDE\FORMOTEROL FUMARATE DIHYDRATE
     Indication: Product used for unknown indication
  6. ATROVENT [Concomitant]
     Active Substance: IPRATROPIUM BROMIDE
     Indication: Product used for unknown indication
  7. CLONAZEPAM [Concomitant]
     Active Substance: CLONAZEPAM
     Indication: Product used for unknown indication
  8. SIMBRINZA [Concomitant]
     Active Substance: BRIMONIDINE TARTRATE\BRINZOLAMIDE
     Indication: Product used for unknown indication
  9. METAMIZOLE [Concomitant]
     Active Substance: METAMIZOLE
     Indication: Product used for unknown indication
  10. TOBRADEX [Concomitant]
     Active Substance: DEXAMETHASONE\TOBRAMYCIN
     Indication: Product used for unknown indication
  11. CENOBAMATE [Concomitant]
     Active Substance: CENOBAMATE
     Indication: Product used for unknown indication
  12. DEXKETOPROFEN\TRAMADOL [Concomitant]
     Active Substance: DEXKETOPROFEN\TRAMADOL
     Indication: Product used for unknown indication
  13. VIGAMOX [Concomitant]
     Active Substance: MOXIFLOXACIN HYDROCHLORIDE
     Indication: Product used for unknown indication

REACTIONS (3)
  - Pulmonary embolism [Recovered/Resolved]
  - International normalised ratio increased [Not Recovered/Not Resolved]
  - Off label use [Unknown]

NARRATIVE: CASE EVENT DATE: 20210201
